FAERS Safety Report 9889850 (Version 3)
Quarter: 2014Q2

REPORT INFORMATION
  Report Type: Spontaneous
  Country: US (occurrence: US)
  Receive Date: 20140212
  Receipt Date: 20140404
  Transmission Date: 20141212
  Serious: Yes (Hospitalization)
  Sender: FDA-Public Use
  Company Number: US-BIOGENIDEC-2014BI013201

PATIENT
  Age: 44 Year
  Sex: Female

DRUGS (1)
  1. TYSABRI [Suspect]
     Indication: MULTIPLE SCLEROSIS
     Route: 042
     Dates: start: 20071022

REACTIONS (5)
  - Gallbladder operation [Not Recovered/Not Resolved]
  - Abscess jaw [Recovered/Resolved]
  - Abscess [Not Recovered/Not Resolved]
  - Cholelithiasis [Recovered/Resolved]
  - Tooth fracture [Recovered/Resolved]
